FAERS Safety Report 12917325 (Version 1)
Quarter: 2016Q4

REPORT INFORMATION
  Report Type: Spontaneous
  Country: US (occurrence: US)
  Receive Date: 20161107
  Receipt Date: 20161107
  Transmission Date: 20170207
  Serious: Yes (Other)
  Sender: FDA-Public Use
  Company Number: US-ELI_LILLY_AND_COMPANY-US201610010331

PATIENT
  Sex: Female

DRUGS (1)
  1. HUMALOG [Suspect]
     Active Substance: INSULIN LISPRO
     Indication: TYPE 2 DIABETES MELLITUS
     Dosage: UNK, ON A SLIDING SCALE WITH MEALS
     Route: 065

REACTIONS (11)
  - Carotid artery occlusion [Unknown]
  - Blood glucose decreased [Unknown]
  - Haemorrhagic stroke [Unknown]
  - Visual acuity reduced [Unknown]
  - Blood glucose increased [Unknown]
  - Malaise [Unknown]
  - Blood disorder [Unknown]
  - Vertigo [Unknown]
  - Fall [Unknown]
  - Head injury [Unknown]
  - Sleep disorder [Unknown]

NARRATIVE: CASE EVENT DATE: 2003
